FAERS Safety Report 12210297 (Version 2)
Quarter: 2020Q2

REPORT INFORMATION
  Report Type: Other
  Country: NL (occurrence: NL)
  Receive Date: 20160325
  Receipt Date: 20200514
  Transmission Date: 20200713
  Serious: Yes (Hospitalization, Other)
  Sender: FDA-Public Use
  Company Number: NL-ASTELLAS-2016US010339

PATIENT

DRUGS (10)
  1. MOMETASONE FUROATE. [Suspect]
     Active Substance: MOMETASONE FUROATE
     Indication: CYSTIC FIBROSIS
     Dosage: 100 ?G, THRICE DAILY
     Route: 064
     Dates: start: 201507
  2. URSOCHOL [Suspect]
     Active Substance: URSODIOL
     Indication: CYSTIC FIBROSIS
     Route: 064
     Dates: start: 201507
  3. PROPRANOLOL [Suspect]
     Active Substance: PROPRANOLOL HYDROCHLORIDE
     Indication: CYSTIC FIBROSIS
     Route: 064
     Dates: start: 201507
  4. OMEPRAZOLE. [Suspect]
     Active Substance: OMEPRAZOLE
     Indication: CYSTIC FIBROSIS
     Route: 064
     Dates: start: 201507
  5. PROGRAFT [Suspect]
     Active Substance: TACROLIMUS
     Indication: CYSTIC FIBROSIS
     Route: 064
     Dates: start: 201507
  6. COTRIMOXAZOL [Suspect]
     Active Substance: SULFAMETHOXAZOLE\TRIMETHOPRIM
     Indication: CYSTIC FIBROSIS
     Dosage: UNK, UNKNOWN FREQ. SELF MANAGED
     Route: 064
     Dates: start: 201507
  7. PANCREASE HL [Suspect]
     Active Substance: PANCRELIPASE
     Indication: PRODUCT USED FOR UNKNOWN INDICATION
     Dosage: UNK, UNKNOWN FREQ. SELF MANAGED
     Route: 064
     Dates: start: 201507
  8. PREDNISOLON [PREDNISOLONE] [Suspect]
     Active Substance: PREDNISOLONE
     Indication: CYSTIC FIBROSIS
     Route: 064
     Dates: start: 201507
  9. AZATHIOPRINE. [Suspect]
     Active Substance: AZATHIOPRINE
     Indication: CYSTIC FIBROSIS
     Route: 064
     Dates: start: 201507
  10. TOCOFEROL [Suspect]
     Active Substance: TOCOPHEROL
     Indication: CYSTIC FIBROSIS
     Dosage: 4 DF (25 MG/ML), ONCE DAILY
     Route: 064
     Dates: start: 201507

REACTIONS (2)
  - Premature baby [Unknown]
  - Foetal growth restriction [Recovering/Resolving]

NARRATIVE: CASE EVENT DATE: 201602
